FAERS Safety Report 14652942 (Version 1)
Quarter: 2018Q1

REPORT INFORMATION
  Report Type: Spontaneous
  Country: ES (occurrence: ES)
  Receive Date: 20180319
  Receipt Date: 20180319
  Transmission Date: 20180509
  Serious: Yes (Hospitalization)
  Sender: FDA-Public Use
  Company Number: ES-AUROBINDO-AUR-APL-2018-011117

PATIENT
  Age: 82 Year
  Sex: Female

DRUGS (5)
  1. PARACETAMOL [Concomitant]
     Active Substance: ACETAMINOPHEN
     Indication: FLANK PAIN
     Dosage: 1 GRAM
     Route: 048
     Dates: start: 20171125
  2. TRAMADOL HYDROCHLORIDE. [Concomitant]
     Active Substance: TRAMADOL HYDROCHLORIDE
     Indication: FLANK PAIN
     Dosage: 37.5 MILLIGRAM, ONCE A DAY
     Route: 048
     Dates: start: 20171125, end: 20171215
  3. METAMIZOL                          /06276702/ [Concomitant]
     Active Substance: METAMIZOLE
     Indication: FLANK PAIN
     Dosage: 575 MILLIGRAM, ONCE A DAY
     Route: 048
     Dates: start: 20171129, end: 20171215
  4. XARELTO [Interacting]
     Active Substance: RIVAROXABAN
     Indication: ATRIAL FIBRILLATION
     Dosage: 20 MILLIGRAM, ONCE A DAY
     Route: 048
     Dates: start: 20160225, end: 20171215
  5. SERTRALINE [Suspect]
     Active Substance: SERTRALINE HYDROCHLORIDE
     Indication: DEPRESSION
     Dosage: 100 MILLIGRAM, ONCE A DAY
     Route: 048
     Dates: start: 20161020, end: 20161215

REACTIONS (1)
  - Retroperitoneal haematoma [Recovering/Resolving]

NARRATIVE: CASE EVENT DATE: 20171215
